FAERS Safety Report 16317833 (Version 4)
Quarter: 2019Q3

REPORT INFORMATION
  Report Type: Spontaneous
  Country: US (occurrence: US)
  Receive Date: 20190516
  Receipt Date: 20190930
  Transmission Date: 20191004
  Serious: No
  Sender: FDA-Public Use
  Company Number: US-BIOGEN-2019BI00737439

PATIENT
  Age: 55 Year
  Sex: Male

DRUGS (5)
  1. TECFIDERA [Suspect]
     Active Substance: DIMETHYL FUMARATE
     Dosage: TAKE 1 CAPSULE BY MOUTH TWICE A DAY
     Route: 048
  2. GABAPENTIN. [Concomitant]
     Active Substance: GABAPENTIN
     Route: 065
  3. PRAMIPEXOLE DIHYDROCHLORIDE. [Concomitant]
     Active Substance: PRAMIPEXOLE DIHYDROCHLORIDE
     Route: 065
  4. TECFIDERA [Suspect]
     Active Substance: DIMETHYL FUMARATE
     Indication: MULTIPLE SCLEROSIS
     Dosage: TAKE 1 CAPSULE BY MOUTH TWICE A DAY
     Route: 048
  5. TRAZODONE [Concomitant]
     Active Substance: TRAZODONE HYDROCHLORIDE
     Route: 065

REACTIONS (14)
  - Weight decreased [Not Recovered/Not Resolved]
  - Asthenia [Unknown]
  - Facial pain [Unknown]
  - Flushing [Unknown]
  - Toothache [Unknown]
  - Myalgia [Unknown]
  - Eating disorder [Not Recovered/Not Resolved]
  - Muscle spasms [Unknown]
  - Erythema [Recovered/Resolved with Sequelae]
  - Dyskinesia [Not Recovered/Not Resolved]
  - Hemianaesthesia [Not Recovered/Not Resolved]
  - Paraesthesia [Unknown]
  - Speech disorder [Not Recovered/Not Resolved]
  - Feeling hot [Recovered/Resolved with Sequelae]

NARRATIVE: CASE EVENT DATE: 20190813
